FAERS Safety Report 13071945 (Version 1)
Quarter: 2016Q4

REPORT INFORMATION
  Report Type: Spontaneous
  Country: US (occurrence: US)
  Receive Date: 20161228
  Receipt Date: 20161228
  Transmission Date: 20170207
  Serious: No
  Sender: FDA-Public Use
  Company Number: None

PATIENT
  Age: 81 Year
  Sex: Male
  Weight: 101.25 kg

DRUGS (12)
  1. ZETIA [Concomitant]
     Active Substance: EZETIMIBE
  2. LIPITOR [Concomitant]
     Active Substance: ATORVASTATIN CALCIUM
  3. LOSARTIN [Concomitant]
     Active Substance: LOSARTAN
  4. CALCIUM [Concomitant]
     Active Substance: CALCIUM
  5. PRADAXA [Suspect]
     Active Substance: DABIGATRAN ETEXILATE MESYLATE
     Indication: CARDIAC VENTRICULAR THROMBOSIS
     Dosage: ?          QUANTITY:1 CAPSULE(S);OTHER ROUTE:ORAL?
     Route: 048
     Dates: start: 20161209, end: 20161227
  6. CRT-D IMPLANT [Concomitant]
  7. LYCOPENE [Concomitant]
     Active Substance: LYCOPENE
  8. ASA [Concomitant]
     Active Substance: ASPIRIN
  9. FUROSEMIDE. [Concomitant]
     Active Substance: FUROSEMIDE
  10. CARVEDILOL. [Concomitant]
     Active Substance: CARVEDILOL
  11. INSULIN PUMP [Concomitant]
     Active Substance: INSULIN NOS
  12. MULTIVIT [Concomitant]
     Active Substance: VITAMINS

REACTIONS (1)
  - Dyspnoea [None]

NARRATIVE: CASE EVENT DATE: 20161209
